FAERS Safety Report 11869956 (Version 1)
Quarter: 2015Q4

REPORT INFORMATION
  Report Type: Spontaneous
  Country: US (occurrence: US)
  Receive Date: 20151228
  Receipt Date: 20151228
  Transmission Date: 20160305
  Serious: Yes (Death)
  Sender: FDA-Public Use
  Company Number: US-BEH-2015057028

PATIENT
  Age: 65 Year
  Sex: Male
  Weight: 90 kg

DRUGS (19)
  1. LIVALO [Concomitant]
     Active Substance: PITAVASTATIN CALCIUM
  2. SODIUM CHLORIDE. [Concomitant]
     Active Substance: SODIUM CHLORIDE
  3. ZITHROMAX [Concomitant]
     Active Substance: AZITHROMYCIN DIHYDRATE
  4. EPIPEN [Concomitant]
     Active Substance: EPINEPHRINE
  5. CELEBREX [Concomitant]
     Active Substance: CELECOXIB
  6. METOPROLOL [Concomitant]
     Active Substance: METOPROLOL
  7. LIDOCAINE/PRILOCAINE [Concomitant]
  8. ALLOPURINOL. [Concomitant]
     Active Substance: ALLOPURINOL
  9. ZYRTEC [Concomitant]
     Active Substance: CETIRIZINE HYDROCHLORIDE
  10. HIZENTRA [Suspect]
     Active Substance: HUMAN IMMUNOGLOBULIN G
     Indication: SELECTIVE IGA IMMUNODEFICIENCY
     Route: 058
     Dates: start: 20121112
  11. AUGMENTIN [Concomitant]
     Active Substance: AMOXICILLIN\CLAVULANATE POTASSIUM
  12. METHYLPREDNISOLONE. [Concomitant]
     Active Substance: METHYLPREDNISOLONE
  13. FISH OIL [Concomitant]
     Active Substance: FISH OIL
  14. VITAMIN B [Concomitant]
     Active Substance: VITAMIN B
  15. TYLENOL EXTRA STRENGTH [Concomitant]
     Active Substance: ACETAMINOPHEN
  16. HIZENTRA [Suspect]
     Active Substance: HUMAN IMMUNOGLOBULIN G
     Indication: IMMUNODEFICIENCY COMMON VARIABLE
     Route: 058
     Dates: start: 20121112
  17. ASPIRIN. [Concomitant]
     Active Substance: ASPIRIN
  18. ENALAPRIL [Concomitant]
     Active Substance: ENALAPRIL
  19. DIPHENHYDRAMINE. [Concomitant]
     Active Substance: DIPHENHYDRAMINE

REACTIONS (1)
  - Death [Fatal]

NARRATIVE: CASE EVENT DATE: 20151212
